FAERS Safety Report 5136861-0 (Version None)
Quarter: 2006Q4

REPORT INFORMATION
  Report Type: 
  Country: None (occurrence: None)
  Receive Date: 20061023
  Receipt Date: 20061010
  Transmission Date: 20070319
  Serious: Yes (Other)
  Sender: FDA-Public Use
  Company Number: 2006074586

PATIENT
  Age: 11 Year
  Sex: Female
  Weight: 31.8 kg

DRUGS (1)
  1. PIROXICAM [Suspect]
     Indication: CHEST PAIN
     Dosage: ORAL
     Route: 048

REACTIONS (3)
  - CONTUSION [None]
  - EYE PAIN [None]
  - VISION BLURRED [None]
